FAERS Safety Report 4338608-4 (Version None)
Quarter: 2004Q2

REPORT INFORMATION
  Report Type: 
  Country: None (occurrence: None)
  Receive Date: 20040409
  Receipt Date: 20040401
  Transmission Date: 20050107
  Serious: Yes (Hospitalization)
  Sender: FDA-Public Use
  Company Number: 2004-04-0022

PATIENT
  Age: 76 Year
  Sex: Male

DRUGS (3)
  1. FLUTAMIDE [Suspect]
     Indication: PROSTATE CANCER
     Dosage: 375 MG QD ORAL
     Route: 048
     Dates: start: 20010111, end: 20031215
  2. LEUPRORELIN ACETATE INJECTABLES [Suspect]
     Indication: PROSTATE CANCER
     Dosage: 3.75 MG QD SUBCUTANEOUS
     Route: 058
     Dates: start: 20010215, end: 20031215
  3. PROPIVERINE [Concomitant]

REACTIONS (1)
  - INTERSTITIAL LUNG DISEASE [None]
